FAERS Safety Report 6540538-4 (Version None)
Quarter: 2010Q1

REPORT INFORMATION
  Report Type: 
  Country: None (occurrence: None)
  Receive Date: 20100118
  Receipt Date: 20100106
  Transmission Date: 20100710
  Serious: Yes (Hospitalization)
  Sender: FDA-Public Use
  Company Number: GB-RANBAXY-2010RR-30325

PATIENT
  Age: 26 Year
  Sex: Male

DRUGS (2)
  1. PARACETAMOL [Suspect]
     Indication: DRUG USE FOR UNKNOWN INDICATION
     Dosage: 50 DF, UNK
     Route: 048
  2. ALCOHOL [Suspect]
     Indication: DRUG USE FOR UNKNOWN INDICATION

REACTIONS (4)
  - HAEMATEMESIS [None]
  - INTENTIONAL OVERDOSE [None]
  - LIVER INJURY [None]
  - PARAESTHESIA [None]
